FAERS Safety Report 7960411-4 (Version None)
Quarter: 2011Q4

REPORT INFORMATION
  Report Type: 
  Country: None (occurrence: None)
  Receive Date: 20111201
  Receipt Date: 20111121
  Transmission Date: 20120403
  Serious: Yes (Hospitalization, Other)
  Sender: FDA-Public Use
  Company Number: 2010MA001326

PATIENT
  Age: 66 Year
  Sex: Male
  Weight: 93.8946 kg

DRUGS (44)
  1. ALPRAZOLAM [Concomitant]
  2. CLONAZEPAM [Concomitant]
  3. PAROXETINE HCL [Concomitant]
  4. WAL-TUSSIN [Concomitant]
  5. PREDNISONE TAB [Concomitant]
  6. PREDNISONE TAB [Concomitant]
  7. BENADRYL [Concomitant]
  8. ATENOLOL [Concomitant]
  9. ATIVAN [Concomitant]
  10. PAXIL [Concomitant]
  11. PROVENTIL [Concomitant]
  12. ASPIRIN [Concomitant]
  13. FUROSEMIDE [Concomitant]
  14. SEROQUEL [Concomitant]
  15. PRISTIQ [Concomitant]
  16. VITAMIN E [Concomitant]
  17. CYMBALTA [Concomitant]
  18. LEXAPRO [Concomitant]
  19. XANAX [Concomitant]
  20. MIRAPEX [Concomitant]
  21. VALIUM [Concomitant]
  22. VITAMIN D [Concomitant]
  23. SOLU-MEDROL [Concomitant]
  24. GLIPIZIDE [Concomitant]
  25. VISTARIL [Concomitant]
  26. NIFEDIPINE [Concomitant]
  27. ZOCOR [Concomitant]
  28. RESTORIL [Concomitant]
  29. LEVIMIR [Concomitant]
  30. GLUCOPHAGE [Concomitant]
  31. CLOBETASOL [Concomitant]
  32. HYDROXYZINE [Concomitant]
  33. SUCRALFATE [Concomitant]
  34. TRICOR [Concomitant]
  35. FENOFIBRATE [Concomitant]
  36. XOPENEX [Concomitant]
  37. METOCLOPRAMIDE [Suspect]
     Indication: GASTROOESOPHAGEAL REFLUX DISEASE
     Dosage: 10 MG;QID;PO
     Route: 048
     Dates: start: 20071201, end: 20090901
  38. LISINOPRIL [Concomitant]
  39. TEMAZEPAM [Concomitant]
  40. PRILOSEC [Concomitant]
  41. KLONOPIN [Concomitant]
  42. METFORMIN HCL [Concomitant]
  43. MIRAPEX [Concomitant]
  44. DEMEROL [Concomitant]

REACTIONS (44)
  - CORONARY ARTERY DISEASE [None]
  - ERECTILE DYSFUNCTION [None]
  - DYSPEPSIA [None]
  - PANIC ATTACK [None]
  - ARTERIOSCLEROSIS [None]
  - RESTLESS LEGS SYNDROME [None]
  - NECK PAIN [None]
  - CHRONIC OBSTRUCTIVE PULMONARY DISEASE [None]
  - ASTHMA [None]
  - VITAMIN D DECREASED [None]
  - ANXIETY [None]
  - GASTROOESOPHAGEAL REFLUX DISEASE [None]
  - DECREASED APPETITE [None]
  - ARTHROPOD STING [None]
  - MOBILITY DECREASED [None]
  - LIGAMENT SPRAIN [None]
  - TREMOR [None]
  - EMOTIONAL DISORDER [None]
  - ARTHRALGIA [None]
  - RENAL FAILURE CHRONIC [None]
  - DIZZINESS POSTURAL [None]
  - POOR QUALITY SLEEP [None]
  - CATARACT [None]
  - TARDIVE DYSKINESIA [None]
  - DEPRESSION [None]
  - ANHEDONIA [None]
  - IRRITABILITY [None]
  - CHEST DISCOMFORT [None]
  - FLANK PAIN [None]
  - ECONOMIC PROBLEM [None]
  - HYPERTENSION [None]
  - INSOMNIA [None]
  - MUSCULOSKELETAL CHEST PAIN [None]
  - DYSKINESIA [None]
  - SUICIDAL IDEATION [None]
  - ANGINA PECTORIS [None]
  - PERIPHERAL SENSORY NEUROPATHY [None]
  - TYPE 2 DIABETES MELLITUS [None]
  - MEMORY IMPAIRMENT [None]
  - BLOOD PARATHYROID HORMONE INCREASED [None]
  - TINNITUS [None]
  - STRESS [None]
  - HYPERLIPIDAEMIA [None]
  - RESTLESSNESS [None]
